FAERS Safety Report 7866406-3 (Version None)
Quarter: 2011Q4

REPORT INFORMATION
  Report Type: 
  Country: None (occurrence: None)
  Receive Date: 20111028
  Receipt Date: 20110613
  Transmission Date: 20120403
  Serious: No
  Sender: FDA-Public Use
  Company Number: US-GLAXOSMITHKLINE-A0931312A

PATIENT
  Age: 84 Year
  Sex: Male

DRUGS (7)
  1. AMBIEN [Concomitant]
  2. COMBIVENT [Concomitant]
  3. ALBUTEROL [Concomitant]
  4. ZESTRIL [Concomitant]
  5. NEURONTIN [Concomitant]
  6. CRESTOR [Concomitant]
  7. ADVAIR DISKUS 100/50 [Suspect]
     Indication: CHRONIC OBSTRUCTIVE PULMONARY DISEASE
     Dosage: 1PUFF TWICE PER DAY
     Route: 055
     Dates: start: 20010601

REACTIONS (4)
  - ABDOMINAL PAIN UPPER [None]
  - CONSTIPATION [None]
  - NAUSEA [None]
  - GASTROINTESTINAL DISORDER [None]
